FAERS Safety Report 5487434-1 (Version None)
Quarter: 2007Q4

REPORT INFORMATION
  Report Type: 
  Country: None (occurrence: None)
  Receive Date: 20071015
  Receipt Date: 20070927
  Transmission Date: 20080405
  Serious: Yes (Other)
  Sender: FDA-Public Use
  Company Number: 8027398

PATIENT
  Age: 53 Year
  Sex: Female

DRUGS (3)
  1. LEVETIRACETAM [Suspect]
     Indication: TEMPORAL LOBE EPILEPSY
     Dosage: 500 MG 2/D PO
     Route: 048
     Dates: start: 20050101, end: 20061001
  2. LEVETIRACETAM [Suspect]
     Indication: TEMPORAL LOBE EPILEPSY
     Dosage: 500 MG 3/D PO
     Route: 048
     Dates: start: 20061002, end: 20070821
  3. ELTHYRONE [Concomitant]

REACTIONS (4)
  - AFFECT LABILITY [None]
  - IRRITABILITY [None]
  - PARANOIA [None]
  - SUICIDAL IDEATION [None]
